FAERS Safety Report 20418646 (Version 1)
Quarter: 2022Q1

REPORT INFORMATION
  Report Type: Spontaneous
  Country: US (occurrence: US)
  Receive Date: 20220202
  Receipt Date: 20220202
  Transmission Date: 20220423
  Serious: No
  Sender: FDA-Public Use
  Company Number: US-SA-SAC20220130000094

PATIENT
  Sex: Female

DRUGS (9)
  1. DUPIXENT [Suspect]
     Active Substance: DUPILUMAB
     Indication: Dermatitis atopic
     Dosage: 300 MG, QOW
     Route: 058
     Dates: start: 202107
  2. VITAMINS [Concomitant]
     Active Substance: VITAMINS
  3. EUCRISA [Concomitant]
     Active Substance: CRISABOROLE
  4. TRIAMCINOLONE ACETONIDE [Concomitant]
     Active Substance: TRIAMCINOLONE ACETONIDE
     Dosage: 50MG
  5. TRAMADOL HCL [Concomitant]
     Active Substance: TRAMADOL HYDROCHLORIDE
     Dosage: UNK MG
  6. IBUPROFEN [Concomitant]
     Active Substance: IBUPROFEN
  7. NEOMYCIN [Concomitant]
     Active Substance: NEOMYCIN
  8. PENICILLIN V POTASSIUM [Concomitant]
     Active Substance: PENICILLIN V POTASSIUM
  9. NICKEL [Concomitant]
     Active Substance: NICKEL

REACTIONS (1)
  - Oral herpes [Unknown]
